FAERS Safety Report 6679312-7 (Version None)
Quarter: 2010Q2

REPORT INFORMATION
  Report Type: 
  Country: None (occurrence: None)
  Receive Date: 20100413
  Receipt Date: 20100408
  Transmission Date: 20101027
  Serious: Yes (Hospitalization)
  Sender: FDA-Public Use
  Company Number: JP-EISAI INC.-E2020-06379-SPO-JP

PATIENT
  Age: 70 Year
  Sex: Female

DRUGS (1)
  1. ARICEPT [Suspect]
     Indication: DEMENTIA ALZHEIMER'S TYPE
     Dosage: UNKNOWN
     Route: 048

REACTIONS (2)
  - ATRIOVENTRICULAR BLOCK [None]
  - ELECTROCARDIOGRAM QT PROLONGED [None]
